FAERS Safety Report 13224663 (Version 2)
Quarter: 2017Q3

REPORT INFORMATION
  Report Type: Spontaneous
  Country: US (occurrence: US)
  Receive Date: 20170213
  Receipt Date: 20170918
  Transmission Date: 20171127
  Serious: Yes (Other)
  Sender: FDA-Public Use
  Company Number: US-SUN PHARMACEUTICAL INDUSTRIES LTD-2017US-132957

PATIENT
  Age: 29 Year
  Sex: Female

DRUGS (3)
  1. PACLITAXEL. [Suspect]
     Active Substance: PACLITAXEL
     Indication: RENAL CANCER METASTATIC
     Dosage: 3 CYCLES OVER 21-DAY INTERVALS
     Route: 065
  2. CISPLATIN. [Suspect]
     Active Substance: CISPLATIN
     Indication: RENAL CANCER METASTATIC
     Dosage: 3 CYCLES OVER 21-DAY INTERVALS
     Route: 065
  3. GEMCITABINE [Suspect]
     Active Substance: GEMCITABINE\GEMCITABINE HYDROCHLORIDE
     Indication: RENAL CANCER METASTATIC
     Dosage: 3 CYCLES OVER 21-DAY INTERVALS
     Route: 065

REACTIONS (1)
  - Cytopenia [Unknown]
